FAERS Safety Report 4379575-7 (Version None)
Quarter: 2004Q2

REPORT INFORMATION
  Report Type: 
  Country: None (occurrence: None)
  Receive Date: 20040415
  Receipt Date: 20040216
  Transmission Date: 20050107
  Serious: No
  Sender: FDA-Public Use
  Company Number: 2004-02-1388

PATIENT
  Age: 73 Year
  Sex: Female
  Weight: 58.9676 kg

DRUGS (1)
  1. CLARINEX [Suspect]
     Indication: NASOPHARYNGITIS
     Dosage: 5MG QD ORAL
     Route: 048
     Dates: start: 20040126, end: 20040126

REACTIONS (2)
  - EPISTAXIS [None]
  - INTENTIONAL MISUSE [None]
